FAERS Safety Report 5855761-1 (Version None)
Quarter: 2008Q3

REPORT INFORMATION
  Report Type: 
  Country: None (occurrence: None)
  Receive Date: 20080822
  Receipt Date: 20080813
  Transmission Date: 20090109
  Serious: Yes (Hospitalization)
  Sender: FDA-Public Use
  Company Number: CC08--495

PATIENT
  Age: 26 Year
  Sex: Male
  Weight: 72.5755 kg

DRUGS (2)
  1. PRIMATENE MIST [Suspect]
     Indication: EMPHYSEMA
     Dosage: 2 ACTUATIONS AS NEEDED
     Dates: start: 20080812
  2. DOXICYCLIN AND SUBOXON [Concomitant]

REACTIONS (4)
  - COLD SWEAT [None]
  - DYSPNOEA [None]
  - JOINT STIFFNESS [None]
  - MUSCLE TIGHTNESS [None]
